FAERS Safety Report 19961604 (Version 2)
Quarter: 2022Q4

REPORT INFORMATION
  Report Type: Report from Study
  Country: US (occurrence: US)
  Receive Date: 20211017
  Receipt Date: 20221026
  Transmission Date: 20230113
  Serious: Yes (Hospitalization)
  Sender: FDA-Public Use
  Company Number: US-BIOGEN-2021BI01058905

PATIENT
  Sex: Female

DRUGS (4)
  1. VUMERITY [Suspect]
     Active Substance: DIROXIMEL FUMARATE
     Indication: Multiple sclerosis
     Dosage: TOOK 1 PILL ONCE A DAY FOR THE FIRST WEEK AND THEN TAPERED UP SLOWLY TO THE 462 MG DOSE BID
     Route: 050
     Dates: start: 20210716
  2. VUMERITY [Suspect]
     Active Substance: DIROXIMEL FUMARATE
     Dosage: TOOK 1 PILL ONCE A DAY FOR THE FIRST WEEK AND THEN TAPERED UP SLOWLY TO THE 462 MG DOSE BID
     Route: 050
     Dates: end: 202109
  3. VUMERITY [Suspect]
     Active Substance: DIROXIMEL FUMARATE
     Route: 050
     Dates: start: 20210716, end: 20210901
  4. TOPAMAX [Concomitant]
     Active Substance: TOPIRAMATE
     Indication: Product used for unknown indication
     Route: 050

REACTIONS (11)
  - Multiple sclerosis relapse [Recovered/Resolved]
  - Fatigue [Recovered/Resolved]
  - Arrhythmia [Recovered/Resolved]
  - Autonomic nervous system imbalance [Recovered/Resolved]
  - Headache [Recovered/Resolved]
  - Weight decreased [Recovered/Resolved]
  - Gait inability [Recovered/Resolved]
  - Motor dysfunction [Recovered/Resolved]
  - Gastrointestinal disorder [Recovered/Resolved]
  - Chest discomfort [Recovered/Resolved]
  - Heart rate increased [Recovered/Resolved]

NARRATIVE: CASE EVENT DATE: 20210101
